FAERS Safety Report 12742946 (Version 1)
Quarter: 2016Q3

REPORT INFORMATION
  Report Type: Spontaneous
  Country: NO (occurrence: NO)
  Receive Date: 20160914
  Receipt Date: 20160914
  Transmission Date: 20161109
  Serious: Yes (Life-Threatening, Hospitalization, Other)
  Sender: FDA-Public Use
  Company Number: NO-BRISTOL-MYERS SQUIBB COMPANY-BMS-2016-073659

PATIENT
  Age: 89 Year
  Sex: Female

DRUGS (7)
  1. FLAGYL [Concomitant]
     Active Substance: METRONIDAZOLE\METRONIDAZOLE HYDROCHLORIDE
     Indication: DIVERTICULUM INTESTINAL
     Dosage: 400 MG, QD
     Route: 048
     Dates: start: 20160818, end: 20160821
  2. ELIQUIS [Suspect]
     Active Substance: APIXABAN
     Indication: CEREBROVASCULAR ACCIDENT PROPHYLAXIS
     Dosage: 5 MG, BID
     Route: 048
     Dates: end: 20160821
  3. ATENOLOL. [Concomitant]
     Active Substance: ATENOLOL
     Indication: HYPERTENSION
     Dosage: 25 MG, QD
     Route: 048
  4. LEVAXIN [Concomitant]
     Active Substance: LEVOTHYROXINE SODIUM
     Indication: PRODUCT USED FOR UNKNOWN INDICATION
     Route: 048
  5. TAZOCIN [Concomitant]
     Active Substance: PIPERACILLIN SODIUM\TAZOBACTAM SODIUM
     Indication: DIVERTICULUM INTESTINAL
     Route: 042
     Dates: end: 20160818
  6. FURIX [Concomitant]
     Active Substance: FUROSEMIDE
     Indication: HYPERTENSION
     Dosage: 40 MG, QD
     Route: 048
  7. BACTRIM [Concomitant]
     Active Substance: SULFAMETHOXAZOLE\TRIMETHOPRIM
     Indication: DIVERTICULUM INTESTINAL
     Dosage: 2 DF, BID
     Route: 048
     Dates: start: 20160818, end: 20160821

REACTIONS (9)
  - Packed red blood cell transfusion [Unknown]
  - Melaena [Recovering/Resolving]
  - Small intestinal haemorrhage [Recovering/Resolving]
  - Therapeutic embolisation [Unknown]
  - Haematemesis [Recovering/Resolving]
  - Haemodynamic instability [Recovering/Resolving]
  - Diverticular perforation [Not Recovered/Not Resolved]
  - Transfusion [Unknown]
  - Duodenal sphincterotomy [Unknown]

NARRATIVE: CASE EVENT DATE: 20160808
